FAERS Safety Report 24732557 (Version 1)
Quarter: 2024Q4

REPORT INFORMATION
  Report Type: Spontaneous
  Country: CO (occurrence: CO)
  Receive Date: 20241213
  Receipt Date: 20241213
  Transmission Date: 20250115
  Serious: Yes (Other)
  Sender: BOEHRINGER INGELHEIM
  Company Number: CO-002147023-NVSC2022CO121161

PATIENT
  Age: 58 Year
  Sex: Male
  Weight: 70 kg

DRUGS (13)
  1. EMPAGLIFLOZIN [Suspect]
     Active Substance: EMPAGLIFLOZIN
     Indication: Hypoglycaemia
  2. ATORVASTATIN [Suspect]
     Active Substance: ATORVASTATIN
     Indication: Blood cholesterol abnormal
     Dates: start: 2016
  3. LOSARTAN [Suspect]
     Active Substance: LOSARTAN
     Indication: Hypertension
     Dates: start: 2012
  4. COSENTYX [Suspect]
     Active Substance: SECUKINUMAB
     Indication: Psoriasis
     Dates: start: 201908
  5. COSENTYX [Suspect]
     Active Substance: SECUKINUMAB
     Dates: start: 20200901
  6. INSULIN NOS [Suspect]
     Active Substance: INSULIN NOS
     Indication: Type 2 diabetes mellitus
  7. INSULIN NOS [Suspect]
     Active Substance: INSULIN NOS
     Dosage: DOSAGE: 20 (DOES NOT INDICATE UNIT OF MEASUREMENT),
     Route: 065
  8. METFORMIN [Suspect]
     Active Substance: METFORMIN HYDROCHLORIDE
     Indication: Type 2 diabetes mellitus
  9. ROSUVASTATIN [Suspect]
     Active Substance: ROSUVASTATIN
     Indication: Hypercholesterolaemia
     Dates: start: 2022
  10. METFORMIN HYDROCHLORIDE\VILDAGLIPTIN [Suspect]
     Active Substance: METFORMIN HYDROCHLORIDE\VILDAGLIPTIN
     Indication: Type 2 diabetes mellitus
     Dosage: 50/800 MG
  11. INSULIN GLULISINE [Concomitant]
     Active Substance: INSULIN GLULISINE
     Indication: Diabetes mellitus
     Dosage: (12 UNITS ON THE MORNING AND 14 UNITS IN EVENING)
     Dates: start: 2017
  12. INSULIN GLARGINE [Concomitant]
     Active Substance: INSULIN GLARGINE
     Indication: Type 2 diabetes mellitus
     Dosage: (58 UNITS)
     Dates: start: 2017
  13. INSULIN GLARGINE [Concomitant]
     Active Substance: INSULIN GLARGINE
     Dosage: DOSAGE: 56 (DOES NOT INDICATE UNIT OF MEASUREMENT)

REACTIONS (9)
  - Diverticulum intestinal [Recovered/Resolved]
  - Psoriasis [Not Recovered/Not Resolved]
  - Gastritis [Recovered/Resolved]
  - Haemorrhage [Recovered/Resolved]
  - Dyspepsia [Recovered/Resolved]
  - Rash [Unknown]
  - Peripheral swelling [Unknown]
  - Tooth loss [Unknown]
  - Intentional dose omission [Unknown]
